FAERS Safety Report 7858797 (Version 4)
Quarter: 2013Q4

REPORT INFORMATION
  Report Type: Spontaneous
  Country: US (occurrence: US)
  Receive Date: 20110316
  Receipt Date: 20131127
  Transmission Date: 20140711
  Serious: Yes (Hospitalization)
  Sender: FDA-Public Use
  Company Number: US-BAYER-2011-022893

PATIENT
  Age: 19 Year
  Sex: Female
  Weight: 47.17 kg

DRUGS (4)
  1. YAZ [Suspect]
     Indication: PREMENSTRUAL SYNDROME
     Dosage: UNK
     Dates: start: 200806, end: 200910
  2. YASMIN [Suspect]
     Indication: PREMENSTRUAL SYNDROME
     Dosage: UNK
     Dates: start: 2004, end: 200806
  3. DOXEPIN [Concomitant]
     Indication: INCREASED APPETITE
  4. ATENOLOL [Concomitant]
     Indication: HEART RATE ABNORMAL

REACTIONS (2)
  - Cholecystectomy [None]
  - Cholecystitis chronic [None]
